FAERS Safety Report 4771042-1 (Version None)
Quarter: 2005Q3

REPORT INFORMATION
  Report Type: 
  Country: None (occurrence: None)
  Receive Date: 20050914
  Receipt Date: 20050905
  Transmission Date: 20060218
  Serious: Yes (Other)
  Sender: FDA-Public Use
  Company Number: 2004033553

PATIENT
  Age: 23 Year
  Sex: Female
  Weight: 52 kg

DRUGS (9)
  1. ZOLOFT [Suspect]
     Indication: DEPRESSION
     Dosage: 50 MG (50  MG, 1 IN 1 D), ORAL
     Route: 048
     Dates: start: 20000101
  2. CLONAZEPAM [Suspect]
     Indication: BIPOLAR DISORDER
     Dosage: 3 MG (3 MG, 1 IN 1 D), ORAL
     Route: 048
     Dates: start: 20050801
  3. SYNTHROID [Concomitant]
  4. PIROXICAM [Concomitant]
  5. ROHYPNOL (FLUNITRAZEPAM) [Concomitant]
  6. L-LYSINE (LYSINE) [Concomitant]
  7. AMPLICTIL (CHLORPROMAZINE) [Concomitant]
  8. HERBAL PREPARATION (HERBAL PREPARATION) [Concomitant]
  9. BETAGAN [Concomitant]

REACTIONS (22)
  - AGGRESSION [None]
  - ANOREXIA [None]
  - ANXIETY [None]
  - CRYING [None]
  - DEPRESSION [None]
  - DISEASE RECURRENCE [None]
  - DIZZINESS [None]
  - DYSKINESIA [None]
  - EUPHORIC MOOD [None]
  - EYELID PTOSIS [None]
  - GALACTORRHOEA [None]
  - HAEMORRHAGE [None]
  - HEADACHE [None]
  - HORMONE LEVEL ABNORMAL [None]
  - INSOMNIA [None]
  - MUSCULOSKELETAL PAIN [None]
  - NAUSEA [None]
  - SOMNOLENCE [None]
  - SUICIDE ATTEMPT [None]
  - TREMOR [None]
  - VAGINAL HAEMORRHAGE [None]
  - WEIGHT DECREASED [None]
